FAERS Safety Report 10501681 (Version 1)
Quarter: 2014Q4

REPORT INFORMATION
  Report Type: Spontaneous
  Country: US (occurrence: None)
  Receive Date: 20141006
  Receipt Date: 20141006
  Transmission Date: 20150528
  Serious: Yes (Hospitalization)
  Sender: FDA-Public Use
  Company Number: None

PATIENT
  Age: 80 Year
  Sex: Male
  Weight: 71.2 kg

DRUGS (9)
  1. RUXOLITINIB [Suspect]
     Active Substance: RUXOLITINIB
     Indication: ACUTE MYELOID LEUKAEMIA
     Route: 048
     Dates: start: 20140821, end: 20140923
  2. ALLOPURINOL. [Concomitant]
     Active Substance: ALLOPURINOL
  3. THIAMINE HCL [Concomitant]
  4. MULTIVITAMINS-MINERALS-LUTEIN [Concomitant]
  5. NOTRIPTYLINE [Concomitant]
  6. OMEPRAZOLE. [Concomitant]
     Active Substance: OMEPRAZOLE
  7. CALCIUM VITAMIN D [Concomitant]
     Active Substance: CALCIUM\VITAMIN D
  8. HYDROCODONE [Concomitant]
     Active Substance: HYDROCODONE
  9. DOCUSATE SODIUM. [Concomitant]
     Active Substance: DOCUSATE SODIUM

REACTIONS (3)
  - Ecchymosis [None]
  - Haemorrhage [None]
  - Haemorrhagic diathesis [None]

NARRATIVE: CASE EVENT DATE: 20140923
